FAERS Safety Report 8479069-3 (Version None)
Quarter: 2012Q2

REPORT INFORMATION
  Report Type: 
  Country: None (occurrence: None)
  Receive Date: 20120629
  Receipt Date: 20120621
  Transmission Date: 20120825
  Serious: Yes (Other)
  Sender: FDA-Public Use
  Company Number: CA-JNJFOC-20120611246

PATIENT
  Sex: Female
  Weight: 80 kg

DRUGS (13)
  1. METFORMIN HCL [Concomitant]
     Route: 065
  2. METOPROLOL SUCCINATE [Concomitant]
     Route: 065
  3. MICARDIS [Concomitant]
     Route: 065
  4. ACETAMINOPHEN [Concomitant]
     Route: 065
  5. XANAX [Concomitant]
     Route: 065
  6. FOLIC ACID [Concomitant]
     Dosage: FOR 5/7
     Route: 003
  7. ASPIRIN [Concomitant]
     Route: 048
  8. METHOTREXATE [Concomitant]
     Route: 030
  9. CRESTOR [Concomitant]
     Route: 065
  10. OMEPRAZOLE (PRISOLEC) [Concomitant]
     Route: 065
  11. VITAMIN B-12 [Concomitant]
     Route: 066
  12. REMICADE [Suspect]
     Indication: RHEUMATOID ARTHRITIS
     Route: 042
     Dates: start: 20030717
  13. NORVASC [Concomitant]
     Route: 065

REACTIONS (3)
  - DIARRHOEA [None]
  - NAUSEA [None]
  - VOMITING [None]
